FAERS Safety Report 4323462-7 (Version None)
Quarter: 2004Q1

REPORT INFORMATION
  Report Type: 
  Country: None (occurrence: None)
  Receive Date: 20040325
  Receipt Date: 20040317
  Transmission Date: 20041129
  Serious: Yes (Other)
  Sender: FDA-Public Use
  Company Number: JP-ROCHE-362146

PATIENT
  Age: 50 Year
  Sex: Male

DRUGS (2)
  1. TAMIFLU [Suspect]
     Route: 048
     Dates: start: 20040305, end: 20040307
  2. ACETAMINOPHEN [Concomitant]
     Route: 054

REACTIONS (1)
  - INTESTINAL ULCER [None]
